FAERS Safety Report 5145208-5 (Version None)
Quarter: 2006Q4

REPORT INFORMATION
  Report Type: 
  Country: None (occurrence: None)
  Receive Date: 20061031
  Receipt Date: 20061016
  Transmission Date: 20070319
  Serious: Yes (Hospitalization)
  Sender: FDA-Public Use
  Company Number: SPI200600140

PATIENT
  Sex: Male

DRUGS (2)
  1. AMITIZA [Suspect]
     Indication: DRUG USE FOR UNKNOWN INDICATION
     Dosage: 24 MCG, ORAL
     Route: 048
     Dates: start: 20060905
  2. ZESTORETIC [Concomitant]

REACTIONS (2)
  - BLOOD CHLORIDE DECREASED [None]
  - HYPONATRAEMIA [None]
